FAERS Safety Report 4372426-6 (Version None)
Quarter: 2004Q2

REPORT INFORMATION
  Report Type: 
  Country: None (occurrence: None)
  Receive Date: 20040526
  Receipt Date: 20040513
  Transmission Date: 20050107
  Serious: Yes (Death)
  Sender: FDA-Public Use
  Company Number: DE-JNJFOC-20040502863

PATIENT
  Age: 58 Year
  Sex: Female

DRUGS (8)
  1. RISPERDAL [Suspect]
     Indication: SCHIZOAFFECTIVE DISORDER
     Dosage: 4 MG, IN 1 DAY, ORAL
     Route: 048
  2. TRUXAL (CHLORPROTHIXENE HYDROCHLORIDE) [Concomitant]
  3. LORAZEPAM [Concomitant]
  4. TIMONIL (CARBAZEPINE) [Concomitant]
  5. RAMIPRIL [Concomitant]
  6. ACETYLSALICYLIC ACID SRT [Concomitant]
  7. DYAZIDE [Concomitant]
  8. ISMO (ISOSORBIDE MONINITRATE) [Concomitant]

REACTIONS (6)
  - ARTERIOSCLEROSIS [None]
  - HEPATIC CONGESTION [None]
  - RIGHT VENTRICULAR FAILURE [None]
  - SPLEEN CONGESTION [None]
  - SUDDEN DEATH [None]
  - VENTRICULAR HYPERTROPHY [None]
